FAERS Safety Report 17915668 (Version 2)
Quarter: 2023Q1

REPORT INFORMATION
  Report Type: Spontaneous
  Country: DE (occurrence: DE)
  Receive Date: 20200619
  Receipt Date: 20230116
  Transmission Date: 20230418
  Serious: Yes (Hospitalization)
  Sender: FDA-Public Use
  Company Number: DE-ADRED-04872-01

PATIENT
  Age: 80 Year
  Sex: Female

DRUGS (12)
  1. PRAMIPEXOLE [Suspect]
     Active Substance: PRAMIPEXOLE
     Indication: Product used for unknown indication
     Dosage: 0.088 MG, 0-0-3-0, TABLETS
     Route: 048
  2. LEVOFLOXACIN [Suspect]
     Active Substance: LEVOFLOXACIN
     Indication: Product used for unknown indication
     Dosage: 500 MG, 0-1-0-0, TABLETS
     Route: 048
  3. MORPHINE [Suspect]
     Active Substance: MORPHINE
     Indication: Product used for unknown indication
     Dosage: 10 MG, 1-0-0-0, PROLONGED RELEASE TABLET
     Route: 048
  4. MORPHINE [Suspect]
     Active Substance: MORPHINE
     Dosage: 30 MG, 0-0-1-0, PROLONGED RELEASE TABLET
     Route: 048
  5. MOVICOL [Concomitant]
     Active Substance: POLYETHYLENE GLYCOL 3350\POTASSIUM CHLORIDE\SODIUM BICARBONATE\SODIUM CHLORIDE
     Indication: Product used for unknown indication
     Dosage: NK MG, 1-0-0-0
     Route: 048
  6. ASPIRIN [Concomitant]
     Active Substance: ASPIRIN
     Indication: Product used for unknown indication
     Dosage: 100 MG, 0-1-0-0, TABLETS
     Route: 048
  7. ESOMEPRAZOLE [Concomitant]
     Active Substance: ESOMEPRAZOLE
     Indication: Product used for unknown indication
     Dosage: 40 MG, 1-0-0-0, TABLETS
     Route: 048
  8. METAMIZOL [Concomitant]
     Active Substance: METAMIZOLE SODIUM
     Indication: Product used for unknown indication
     Dosage: 500 MG, 1-1-2-0, TABLETS
     Route: 048
  9. Eferox 125 Mikrogramm [Concomitant]
     Indication: Product used for unknown indication
     Dosage: 125 ?G, 1-0-0-0, TABLETS
     Route: 048
  10. GABAPENTIN [Concomitant]
     Active Substance: GABAPENTIN
     Indication: Product used for unknown indication
     Dosage: 100 MG, 2-0-0-0, CAPSULES
     Route: 048
  11. RAMIPRIL [Concomitant]
     Active Substance: RAMIPRIL
     Indication: Product used for unknown indication
     Dosage: 2.5 MG, 1-0-0-0, TABLETS
     Route: 048
  12. LAXANS AL [Concomitant]
     Indication: Product used for unknown indication
     Dosage: NK MG, 0-0-0-18, DROPS
     Route: 048

REACTIONS (3)
  - Constipation [Recovering/Resolving]
  - Vomiting [Recovering/Resolving]
  - Abdominal pain [Recovering/Resolving]

NARRATIVE: CASE EVENT DATE: 20200301
